FAERS Safety Report 17008263 (Version 2)
Quarter: 2020Q3

REPORT INFORMATION
  Report Type: Spontaneous
  Country: BR (occurrence: BR)
  Receive Date: 20191108
  Receipt Date: 20200721
  Transmission Date: 20201102
  Serious: Yes (Other)
  Sender: FDA-Public Use
  Company Number: BR-TEVA-2019-BR-1133092

PATIENT
  Age: 60 Year
  Sex: Male
  Weight: 123.75 kg

DRUGS (1)
  1. TEVAOXALI [Suspect]
     Active Substance: OXALIPLATIN
     Dosage: 8TH CHEMOTHERAPY CYCLE (PROTOCOL FOLFOX); SUSPENDED IN CYCLE 9, DOSAGE: 211.65 MG ONCE DAILY
     Route: 042
     Dates: start: 20190605

REACTIONS (4)
  - Fatigue [Not Recovered/Not Resolved]
  - Mucosal inflammation [Not Recovered/Not Resolved]
  - Toxicity to various agents [Not Recovered/Not Resolved]
  - Peripheral sensorimotor neuropathy [Not Recovered/Not Resolved]

NARRATIVE: CASE EVENT DATE: 20190703
